FAERS Safety Report 14740438 (Version 3)
Quarter: 2018Q3

REPORT INFORMATION
  Report Type: Report from Study
  Country: CO (occurrence: CO)
  Receive Date: 20180410
  Receipt Date: 20180720
  Transmission Date: 20181010
  Serious: Yes (Other)
  Sender: FDA-Public Use
  Company Number: CO-EMD SERONO-9020176

PATIENT
  Sex: Male
  Weight: 31 kg

DRUGS (1)
  1. SAIZEN [Suspect]
     Active Substance: SOMATROPIN
     Indication: GROWTH HORMONE DEFICIENCY
     Dosage: LIQUID 20 MG (60UI)
     Route: 058
     Dates: start: 20170721, end: 20180328

REACTIONS (1)
  - Ocular neoplasm [Recovered/Resolved]
